FAERS Safety Report 25341368 (Version 4)
Quarter: 2025Q3

REPORT INFORMATION
  Report Type: Report from Study
  Country: CA (occurrence: CA)
  Receive Date: 20250521
  Receipt Date: 20250918
  Transmission Date: 20251021
  Serious: Yes (Other)
  Sender: TAKEDA
  Company Number: CA-TAKEDA-2025TUS031138

PATIENT
  Sex: Female

DRUGS (8)
  1. LANADELUMAB [Suspect]
     Active Substance: LANADELUMAB
     Indication: Hereditary angioedema with C1 esterase inhibitor deficiency
     Dosage: UNK UNK, Q2WEEKS
     Dates: start: 20250319
  2. LANADELUMAB [Suspect]
     Active Substance: LANADELUMAB
     Dosage: UNK UNK, Q2WEEKS
  3. LANADELUMAB [Suspect]
     Active Substance: LANADELUMAB
     Dosage: UNK UNK, Q2WEEKS
  4. LANADELUMAB [Suspect]
     Active Substance: LANADELUMAB
     Dosage: 300 MILLIGRAM/ 2 MILLILITRE, Q2WEEKS
  5. ICATIBANT [Suspect]
     Active Substance: ICATIBANT ACETATE
     Indication: Hereditary angioedema
  6. ICATIBANT [Suspect]
     Active Substance: ICATIBANT ACETATE
  7. BERINERT [Concomitant]
     Active Substance: HUMAN C1-ESTERASE INHIBITOR
  8. DANAZOL [Concomitant]
     Active Substance: DANAZOL

REACTIONS (10)
  - Systemic lupus erythematosus [Unknown]
  - Sjogren^s syndrome [Unknown]
  - Respiratory distress [Unknown]
  - Inability to afford medication [Unknown]
  - Bedridden [Recovering/Resolving]
  - Inappropriate schedule of product administration [Unknown]
  - Computerised tomogram abdomen abnormal [Unknown]
  - Insurance issue [Unknown]
  - General physical health deterioration [Unknown]
  - Hereditary angioedema [Recovering/Resolving]
